FAERS Safety Report 4910125-X (Version None)
Quarter: 2006Q1

REPORT INFORMATION
  Report Type: 
  Country: None (occurrence: None)
  Receive Date: 20060209
  Receipt Date: 20060119
  Transmission Date: 20060701
  Serious: No
  Sender: FDA-Public Use
  Company Number: US200601003246

PATIENT
  Age: 71 Year
  Sex: Male

DRUGS (3)
  1. CIALIS [Suspect]
     Indication: ERECTILE DYSFUNCTION
     Dosage: 20 MG
     Dates: start: 20050701
  2. CARDIZEM [Concomitant]
  3. CANDESARTAN CILEXETIL (CANDESARTAN CILEXETIL) [Concomitant]

REACTIONS (4)
  - EYE IRRITATION [None]
  - NASAL CONGESTION [None]
  - OCULAR HYPERAEMIA [None]
  - VISION BLURRED [None]
